FAERS Safety Report 6072521-X (Version None)
Quarter: 2009Q1

REPORT INFORMATION
  Report Type: 
  Country: None (occurrence: None)
  Receive Date: 20090210
  Receipt Date: 20090130
  Transmission Date: 20090719
  Serious: Yes (Death)
  Sender: FDA-Public Use
  Company Number: US-ROCHE-607050

PATIENT
  Sex: Female
  Weight: 4.3 kg

DRUGS (1)
  1. CYTOVENE IV [Suspect]
     Dosage: 6MG/KG/DOSE EVERY 12 HOURS (WEIGHT 4.2 KG, PER NEOFAX 2008)
     Route: 042
     Dates: start: 20090108, end: 20090114

REACTIONS (1)
  - CONGENITAL RUBELLA INFECTION [None]
